FAERS Safety Report 7202476-3 (Version None)
Quarter: 2010Q4

REPORT INFORMATION
  Report Type: 
  Country: None (occurrence: None)
  Receive Date: 20101229
  Receipt Date: 20101220
  Transmission Date: 20110411
  Serious: Yes (Death)
  Sender: FDA-Public Use
  Company Number: B0690797A

PATIENT
  Sex: Female
  Weight: 45 kg

DRUGS (33)
  1. ALKERAN [Suspect]
     Indication: ALLOGENIC BONE MARROW TRANSPLANTATION THERAPY
     Dosage: 70MG PER DAY
     Route: 042
     Dates: start: 20070222, end: 20070223
  2. CYCLOSPORINE [Suspect]
     Indication: IMMUNOSUPPRESSION
     Route: 065
     Dates: start: 20070224, end: 20070316
  3. THIOTEPA [Concomitant]
     Indication: ALLOGENIC BONE MARROW TRANSPLANTATION THERAPY
     Dosage: 205MG PER DAY
     Dates: start: 20070216, end: 20070217
  4. FLUDARABINE PHOSPHATE [Concomitant]
     Indication: ALLOGENIC BONE MARROW TRANSPLANTATION THERAPY
     Dosage: 40MG PER DAY
     Route: 042
     Dates: start: 20070219, end: 20070223
  5. NEUTROGIN [Concomitant]
     Dosage: 250MCG PER DAY
     Dates: start: 20061130, end: 20071212
  6. NEUTROGIN [Concomitant]
     Dosage: 250MCG PER DAY
     Dates: start: 20070304, end: 20070322
  7. NEUTROGIN [Concomitant]
     Dosage: 250MCG PER DAY
     Dates: start: 20070118, end: 20070125
  8. SOLU-MEDROL [Concomitant]
     Indication: IMMUNOSUPPRESSION
     Route: 042
     Dates: start: 20070307, end: 20070320
  9. MEROPENEM [Concomitant]
     Dosage: 1G PER DAY
     Route: 042
     Dates: start: 20070120, end: 20070220
  10. MEROPENEM [Concomitant]
     Route: 042
     Dates: start: 20070228, end: 20070318
  11. DALACIN [Concomitant]
     Dates: start: 20070120, end: 20070127
  12. VANCOMYCIN [Concomitant]
     Dosage: 1G PER DAY
     Route: 042
     Dates: start: 20070124, end: 20070202
  13. BAKTAR [Concomitant]
     Dosage: 4IUAX PER DAY
     Route: 048
     Dates: start: 20070124, end: 20070207
  14. VANCOMYCIN [Concomitant]
     Dosage: 1.5G PER DAY
     Route: 048
     Dates: start: 20070203, end: 20070218
  15. VANCOMYCIN [Concomitant]
     Dosage: 1.5G PER DAY
     Route: 048
     Dates: start: 20070228, end: 20070307
  16. NEOPHAGEN C [Concomitant]
     Dosage: 60ML PER DAY
     Route: 042
     Dates: start: 20070208, end: 20070305
  17. AMBISOME [Concomitant]
     Dosage: 50MG PER DAY
     Route: 042
     Dates: start: 20070319, end: 20070322
  18. SOLU-MEDROL [Concomitant]
     Route: 042
     Dates: start: 20070307, end: 20070320
  19. NEUART [Concomitant]
     Dosage: 1.5IU3 PER DAY
     Route: 042
     Dates: start: 20070119, end: 20070122
  20. CRAVIT [Concomitant]
     Dosage: 300MG PER DAY
     Route: 048
     Dates: start: 20070118, end: 20070129
  21. CRAVIT [Concomitant]
     Dosage: 300MG PER DAY
     Route: 048
     Dates: start: 20070219, end: 20070228
  22. FUNGUARD [Concomitant]
     Route: 042
     Dates: start: 20070219, end: 20070318
  23. AMBISOME [Concomitant]
     Dosage: 50MG PER DAY
     Route: 042
     Dates: start: 20070319, end: 20070322
  24. BIOFERMIN [Concomitant]
     Dosage: 3G PER DAY
     Route: 048
     Dates: start: 20070222, end: 20070228
  25. FLAGYL [Concomitant]
     Dosage: 750MG PER DAY
     Route: 048
     Dates: start: 20070224, end: 20070228
  26. ZOVIRAX [Concomitant]
     Dosage: 1000MG PER DAY
     Route: 048
     Dates: start: 20070224, end: 20070306
  27. ORGARAN [Concomitant]
     Dosage: 2.5IU3 PER DAY
     Route: 042
     Dates: start: 20070302, end: 20070303
  28. VICCLOX [Concomitant]
     Dosage: 250MG PER DAY
     Route: 042
     Dates: start: 20070307, end: 20070320
  29. GASTER D [Concomitant]
     Dosage: 20MG PER DAY
     Route: 048
     Dates: start: 20061030, end: 20070307
  30. MAXIPIME [Concomitant]
     Route: 042
     Dates: start: 20070319, end: 20070322
  31. ZYVOX [Concomitant]
     Dosage: 600MG PER DAY
     Route: 042
     Dates: start: 20070312, end: 20070322
  32. MIRACLID [Concomitant]
     Dosage: 200IU3 PER DAY
     Route: 042
     Dates: start: 20070310, end: 20070312
  33. HANP [Concomitant]
     Dosage: 1000MCG PER DAY
     Route: 042
     Dates: start: 20070318, end: 20070322

REACTIONS (9)
  - BRAIN STEM HAEMORRHAGE [None]
  - CIRCULATORY COLLAPSE [None]
  - FUNGAEMIA [None]
  - INFECTION [None]
  - MULTI-ORGAN FAILURE [None]
  - RENAL FAILURE [None]
  - RESPIRATORY FAILURE [None]
  - STAPHYLOCOCCAL SEPSIS [None]
  - VENOOCCLUSIVE LIVER DISEASE [None]
